FAERS Safety Report 24814680 (Version 1)
Quarter: 2025Q1

REPORT INFORMATION
  Report Type: Spontaneous
  Country: US (occurrence: US)
  Receive Date: 20250107
  Receipt Date: 20250107
  Transmission Date: 20250409
  Serious: No
  Sender: MYLAN
  Company Number: US-MYLANLABS-2024M1118381

PATIENT
  Age: 25 Year
  Sex: Female

DRUGS (1)
  1. GLATIRAMER ACETATE [Suspect]
     Active Substance: GLATIRAMER ACETATE
     Indication: Product used for unknown indication
     Route: 065
     Dates: start: 202412

REACTIONS (2)
  - Drug ineffective [Unknown]
  - Device malfunction [Unknown]

NARRATIVE: CASE EVENT DATE: 20241218
